FAERS Safety Report 14272597 (Version 2)
Quarter: 2017Q4

REPORT INFORMATION
  Report Type: Spontaneous
  Country: US (occurrence: US)
  Receive Date: 20171211
  Receipt Date: 20171212
  Transmission Date: 20180321
  Serious: Yes (Hospitalization)
  Sender: FDA-Public Use
  Company Number: US-CELGENEUS-USA-20171201017

PATIENT
  Age: 86 Year
  Sex: Male

DRUGS (1)
  1. REVLIMID [Suspect]
     Active Substance: LENALIDOMIDE
     Indication: THROMBOCYTOPENIA
     Dosage: 10 MILLIGRAM
     Route: 048
     Dates: start: 20171109

REACTIONS (3)
  - Asthenia [Unknown]
  - Laboratory test abnormal [Unknown]
  - Fall [Unknown]

NARRATIVE: CASE EVENT DATE: 2017
